FAERS Safety Report 22660726 (Version 1)
Quarter: 2023Q2

REPORT INFORMATION
  Report Type: Spontaneous
  Country: MX (occurrence: MX)
  Receive Date: 20230630
  Receipt Date: 20230630
  Transmission Date: 20230721
  Serious: Yes (Hospitalization, Other)
  Sender: FDA-Public Use
  Company Number: MX-PIRAMAL CRITICAL CARE LIMITED-2023-PPL-000072

PATIENT

DRUGS (6)
  1. SEVOFLURANE [Suspect]
     Active Substance: SEVOFLURANE
     Indication: Maintenance of anaesthesia
     Dosage: CONCENTRATION MINIMUM ALVEOLAR INFUSION (CAM) OF 0.9-1.0%
  2. FENTANYL [Concomitant]
     Active Substance: FENTANYL
     Indication: Induction of anaesthesia
     Dosage: 250 ?G
  3. FENTANYL [Concomitant]
     Active Substance: FENTANYL
     Indication: Analgesic therapy
  4. PROPOFOL [Concomitant]
     Active Substance: PROPOFOL
     Indication: Induction of anaesthesia
     Dosage: 150 MG
  5. PROPOFOL [Concomitant]
     Active Substance: PROPOFOL
     Indication: Sedation
  6. CISATRACURIUM [Concomitant]
     Active Substance: CISATRACURIUM
     Indication: Induction of anaesthesia
     Dosage: 10 MG

REACTIONS (8)
  - Disseminated intravascular coagulation [Recovered/Resolved]
  - Hyperthermia malignant [Recovered/Resolved]
  - Ventricular tachycardia [Recovered/Resolved]
  - Cardiac arrest [Recovered/Resolved]
  - Ventricular fibrillation [Recovered/Resolved]
  - Cardiac failure [Recovered/Resolved]
  - Ischaemic hepatitis [Recovered/Resolved]
  - Acute kidney injury [Recovered/Resolved]
